FAERS Safety Report 6661434-8 (Version None)
Quarter: 2010Q1

REPORT INFORMATION
  Report Type: 
  Country: None (occurrence: None)
  Receive Date: 20100331
  Receipt Date: 20100318
  Transmission Date: 20100710
  Serious: Yes (Hospitalization)
  Sender: FDA-Public Use
  Company Number: US-NOVOPROD-305441

PATIENT
  Age: 70 Year
  Sex: Male

DRUGS (1)
  1. VICTOZA [Suspect]
     Indication: TYPE 2 DIABETES MELLITUS
     Dosage: UNKNOWN
     Route: 058

REACTIONS (1)
  - SMALL INTESTINAL OBSTRUCTION [None]
